FAERS Safety Report 6956961 (Version 4)
Quarter: 2014Q3

REPORT INFORMATION
  Report Type: Spontaneous
  Country: US (occurrence: US)
  Receive Date: 20090331
  Receipt Date: 20140724
  Transmission Date: 20150326
  Serious: Yes (Hospitalization)
  Sender: FDA-Public Use
  Company Number: US-JNJFOC-20090307044

PATIENT
  Age: 48 Year
  Sex: Female
  Weight: 89.4 kg

DRUGS (27)
  1. DESVENLAFAXINE SUCCINATE MONOHYDRATE [Suspect]
     Active Substance: DESVENLAFAXINE
     Indication: MENOPAUSAL SYMPTOMS
     Route: 048
     Dates: start: 20081129, end: 20081224
  2. DESVENLAFAXINE SUCCINATE MONOHYDRATE [Suspect]
     Active Substance: DESVENLAFAXINE
     Indication: MENOPAUSAL SYMPTOMS
     Route: 048
     Dates: start: 20080909, end: 20080915
  3. FLUTICASONE [Suspect]
     Active Substance: FLUTICASONE\FLUTICASONE PROPIONATE
     Indication: SEASONAL ALLERGY
     Route: 055
  4. AMBIEN [Suspect]
     Active Substance: ZOLPIDEM TARTRATE
     Indication: INSOMNIA
     Route: 048
  5. ROBAXIN [Suspect]
     Active Substance: METHOCARBAMOL
     Indication: POST-TRAUMATIC STRESS DISORDER
     Route: 048
  6. DESVENLAFAXINE SUCCINATE MONOHYDRATE [Suspect]
     Active Substance: DESVENLAFAXINE
     Indication: MENOPAUSAL SYMPTOMS
     Route: 048
     Dates: start: 20080916, end: 20081210
  7. DESVENLAFAXINE SUCCINATE MONOHYDRATE [Suspect]
     Active Substance: DESVENLAFAXINE
     Indication: MENOPAUSAL SYMPTOMS
     Route: 048
     Dates: start: 20081217
  8. ABILIFY [Suspect]
     Active Substance: ARIPIPRAZOLE
     Indication: BIPOLAR DISORDER
     Route: 048
  9. LYRICA [Suspect]
     Active Substance: PREGABALIN
     Indication: FIBROMYALGIA
     Route: 048
  10. DESVENLAFAXINE SUCCINATE MONOHYDRATE [Suspect]
     Active Substance: DESVENLAFAXINE
     Indication: MENOPAUSAL SYMPTOMS
     Route: 048
     Dates: start: 20081211
  11. LEXAPRO [Suspect]
     Active Substance: ESCITALOPRAM OXALATE
     Indication: POST-TRAUMATIC STRESS DISORDER
     Route: 048
  12. CLONAZEPAM. [Suspect]
     Active Substance: CLONAZEPAM
     Indication: POST-TRAUMATIC STRESS DISORDER
     Route: 048
  13. LORATADINE. [Suspect]
     Active Substance: LORATADINE
     Indication: SEASONAL ALLERGY
     Route: 048
  14. VIVELLE [Suspect]
     Active Substance: ESTRADIOL
     Indication: HORMONE REPLACEMENT THERAPY
     Route: 062
  15. DESVENLAFAXINE SUCCINATE MONOHYDRATE [Suspect]
     Active Substance: DESVENLAFAXINE
     Indication: MENOPAUSAL SYMPTOMS
     Route: 048
     Dates: start: 20081218, end: 20081224
  16. PLACEBO [Suspect]
     Active Substance: UNSPECIFIED INGREDIENT
     Indication: MENOPAUSAL SYMPTOMS
     Route: 048
     Dates: start: 20080909, end: 20081122
  17. LEXAPRO [Suspect]
     Active Substance: ESCITALOPRAM OXALATE
     Indication: BIPOLAR DISORDER
     Route: 048
  18. CLONAZEPAM. [Suspect]
     Active Substance: CLONAZEPAM
     Indication: BIPOLAR DISORDER
     Route: 048
  19. ABILIFY [Suspect]
     Active Substance: ARIPIPRAZOLE
     Indication: POST-TRAUMATIC STRESS DISORDER
     Route: 048
  20. ZESTORETIC [Suspect]
     Active Substance: HYDROCHLOROTHIAZIDE\LISINOPRIL
     Indication: HYPERTENSION
     Dosage: 20/12.5 DAILY
     Route: 048
     Dates: start: 20081204
  21. VICODIN [Suspect]
     Active Substance: ACETAMINOPHEN\HYDROCODONE BITARTRATE
     Indication: FIBROMYALGIA
     Dosage: 5/500 AS NEEDED
     Route: 048
  22. PLACEBO [Suspect]
     Active Substance: UNSPECIFIED INGREDIENT
     Indication: MENOPAUSAL SYMPTOMS
     Route: 048
     Dates: start: 20081129, end: 20081224
  23. IBUPROFEN. [Suspect]
     Active Substance: IBUPROFEN
     Indication: FIBROMYALGIA
     Route: 048
  24. DESVENLAFAXINE SUCCINATE MONOHYDRATE [Suspect]
     Active Substance: DESVENLAFAXINE
     Indication: MENOPAUSAL SYMPTOMS
     Route: 048
     Dates: start: 20080909, end: 20081122
  25. ROBAXIN [Suspect]
     Active Substance: METHOCARBAMOL
     Indication: BIPOLAR DISORDER
     Route: 048
  26. ROBAXIN [Suspect]
     Active Substance: METHOCARBAMOL
     Indication: FIBROMYALGIA
     Route: 048
  27. ABILIFY [Suspect]
     Active Substance: ARIPIPRAZOLE
     Indication: BIPOLAR I DISORDER
     Route: 048

REACTIONS (7)
  - Dysarthria [Recovered/Resolved]
  - Mental status changes [Recovered/Resolved]
  - Multiple drug therapy [Recovered/Resolved]
  - Asthenia [Recovered/Resolved]
  - Headache [Recovered/Resolved]
  - Hypertension [Recovered/Resolved]
  - Hypokalaemia [Recovered/Resolved]

NARRATIVE: CASE EVENT DATE: 200811
